FAERS Safety Report 17780257 (Version 1)
Quarter: 2020Q2

REPORT INFORMATION
  Report Type: Spontaneous
  Country: US (occurrence: US)
  Receive Date: 20200513
  Receipt Date: 20200513
  Transmission Date: 20200714
  Serious: Yes (Other)
  Sender: FDA-Public Use
  Company Number: US-PFIZER INC-2020189079

PATIENT
  Age: 42 Year

DRUGS (1)
  1. LYRICA [Suspect]
     Active Substance: PREGABALIN
     Dosage: UNK

REACTIONS (7)
  - Deafness [Unknown]
  - Dystonia [Unknown]
  - Nerve injury [Unknown]
  - Pruritus [Unknown]
  - Cerebral palsy [Unknown]
  - Pharyngitis [Unknown]
  - Sinusitis [Unknown]
